FAERS Safety Report 5176251-8 (Version None)
Quarter: 2006Q4

REPORT INFORMATION
  Report Type: 
  Country: None (occurrence: None)
  Receive Date: 20061130
  Receipt Date: 20060523
  Transmission Date: 20070319
  Serious: Yes (Hospitalization)
  Sender: FDA-Public Use
  Company Number: GAM-063-06-USA

PATIENT
  Age: 22 Year
  Sex: Male

DRUGS (14)
  1. OCTAGAM [Suspect]
     Indication: IMMUNE SYSTEM DISORDER
     Dosage: 20GM Q4WEEKS IV
     Route: 042
     Dates: start: 20060501, end: 20060501
  2. NEXIUM [Concomitant]
  3. ATENOLOL [Concomitant]
  4. FLORINEF [Concomitant]
  5. SINGLUAR [Concomitant]
  6. PREDNISOLONE [Concomitant]
  7. FLORADIL [Concomitant]
  8. FLOVENT [Concomitant]
  9. ZANAFLEX [Concomitant]
  10. TOPAMAX [Concomitant]
  11. ATIVAN [Concomitant]
  12. CARNITOR [Concomitant]
  13. XOLAIR [Concomitant]
  14. BONIVA [Concomitant]

REACTIONS (6)
  - ANAPHYLACTOID REACTION [None]
  - BODY TEMPERATURE DECREASED [None]
  - HYPOAESTHESIA [None]
  - LOSS OF CONSCIOUSNESS [None]
  - MOVEMENT DISORDER [None]
  - SYNCOPE [None]
